FAERS Safety Report 6061260-7 (Version None)
Quarter: 2009Q1

REPORT INFORMATION
  Report Type: 
  Country: None (occurrence: None)
  Receive Date: 20090202
  Receipt Date: 20090128
  Transmission Date: 20090719
  Serious: Yes (Death, Life-Threatening, Hospitalization)
  Sender: FDA-Public Use
  Company Number: GB-BAYER-200813582BNE

PATIENT
  Age: 65 Year
  Sex: Female
  Weight: 53 kg

DRUGS (6)
  1. NEXAVAR [Suspect]
     Indication: RENAL CANCER METASTATIC
     Dosage: UNIT DOSE: 200 MG
     Route: 048
     Dates: start: 20081128, end: 20081214
  2. NEXAVAR [Suspect]
     Dosage: UNIT DOSE: 200 MG
     Route: 048
     Dates: start: 20081216, end: 20081219
  3. LANSOPRAZOLE [Concomitant]
     Indication: DRUG USE FOR UNKNOWN INDICATION
     Route: 048
  4. AUGMENTIN '125' [Concomitant]
     Indication: LOWER RESPIRATORY TRACT INFECTION
  5. DEXAMETHASONE [Concomitant]
     Indication: DECREASED APPETITE
     Route: 048
  6. ZOPICLONE [Concomitant]
     Indication: INSOMNIA
     Route: 048

REACTIONS (2)
  - CONVULSION [None]
  - RENAL CANCER [None]
